FAERS Safety Report 16058136 (Version 1)
Quarter: 2019Q1

REPORT INFORMATION
  Report Type: Spontaneous
  Country: KR (occurrence: KR)
  Receive Date: 20190311
  Receipt Date: 20190311
  Transmission Date: 20190418
  Serious: Yes (Hospitalization, Other)
  Sender: FDA-Public Use
  Company Number: KR-009507513-1903KOR001865

PATIENT
  Sex: Female

DRUGS (27)
  1. KEYTRUDA [Suspect]
     Active Substance: PEMBROLIZUMAB
     Indication: OVARIAN CANCER
     Dosage: UNK
     Dates: start: 20190202
  2. KEYTRUDA [Suspect]
     Active Substance: PEMBROLIZUMAB
     Dosage: UNK
     Dates: start: 20190225
  3. AVASTIN (SIMVASTATIN) [Concomitant]
     Active Substance: SIMVASTATIN
  4. DUROGESIC [Concomitant]
     Active Substance: FENTANYL
     Dosage: FORMULATION: PATCH 50MCG/H 21 CM2, QUANTITY 1, DAYS 5
     Dates: start: 20190107, end: 20190119
  5. AMIKACIN. [Concomitant]
     Active Substance: AMIKACIN
     Dosage: QUANTITY 1, DAYS 1
     Dates: start: 20190117
  6. AMIKACIN. [Concomitant]
     Active Substance: AMIKACIN
     Dosage: QUANTITY 1, DAYS 13
     Dates: start: 20190119, end: 20190208
  7. DUPHALAC [Concomitant]
     Active Substance: LACTULOSE
     Dosage: FORMULATION; SYR 10.05G/15ML, QUANTITY 1,DAYS 2
     Dates: start: 20190111, end: 20190112
  8. LANSTON [Concomitant]
     Active Substance: LANSOPRAZOLE
     Dosage: QUANTITY 3, DAYS 1
     Dates: start: 20190112
  9. PETHIDINE HCL HANA [Concomitant]
     Dosage: QUANTITY 3, DAYS 4
     Dates: start: 20190115, end: 20190215
  10. SMOFKABIVEN PERIPHERAL [Concomitant]
     Dosage: QUANTITY 1, DAYS 1
     Dates: start: 20190118
  11. ALBUMIN HUMAN [Concomitant]
     Active Substance: ALBUMIN HUMAN
     Dosage: QUANTITY 1, DAYS 4
     Dates: start: 20190122, end: 20190124
  12. POTASSIUM (UNSPECIFIED) (+) SODIUM (UNSPECIFIED) [Concomitant]
     Dosage: QUANTITY 2, DAYS 1
     Dates: start: 20190123
  13. TANTUM [Concomitant]
     Active Substance: BENZYDAMINE HYDROCHLORIDE
     Dosage: SOLUTION, QUANTITY 1, DAYS 3
     Dates: start: 20190107, end: 20190210
  14. CRAVIT [Concomitant]
     Active Substance: LEVOFLOXACIN
     Dosage: QUANTITY 1, DAYS 36
     Dates: start: 20190116, end: 20190120
  15. LABESIN [Concomitant]
     Dosage: FORMULATION; 20 MG/4ML, QUANTITY 1, DAYS 1
     Dates: start: 20190118
  16. DEXTROSE (+) POTASSIUM (UNSPECIFIED) (+) SODIUM (UNSPECIFIED) [Concomitant]
     Dosage: QUANTITY 2, DAYS 1
     Dates: start: 20190124
  17. MEROPEN [Concomitant]
     Active Substance: MEROPENEM
     Dosage: QUANTITY 6, DAYS 9
     Dates: start: 20190131, end: 20190208
  18. CAELYX [Concomitant]
     Active Substance: DOXORUBICIN HYDROCHLORIDE
  19. MACPERAN [Concomitant]
     Active Substance: METOCLOPRAMIDE HYDROCHLORIDE
     Dosage: QUANTITY 1, DAYS 23
     Dates: start: 20190114, end: 20190125
  20. LABESIN [Concomitant]
     Dosage: QUANTITY 2, DAYS 1
     Dates: start: 20190122
  21. ULCERLMIN [Concomitant]
     Active Substance: SUCRALFATE
     Dosage: SOLUTION, QUANTITY 2, DAY 1
     Dates: start: 20190105
  22. SODIUM OXYBATE. [Concomitant]
     Active Substance: SODIUM OXYBATE
  23. PETHIDINE HCL HANA [Concomitant]
     Dosage: QUANTITY 4, DAYS 1
     Dates: start: 20190116
  24. DEXTROSE. [Concomitant]
     Active Substance: DEXTROSE
     Dosage: CHOONGWAE 5%, DEXTROSE INJECTION 50 ML (BAG), QUANTITY 1, DAYS 23
     Dates: start: 20190114, end: 20190125
  25. CURAN [Concomitant]
     Active Substance: RANITIDINE HYDROCHLORIDE
     Dosage: QUANTITY 4, DAYS 4
     Dates: start: 20190115, end: 20190209
  26. AMIKACIN. [Concomitant]
     Active Substance: AMIKACIN
     Dosage: QUANTITY 1.2, DAYS 9
     Dates: start: 20190118, end: 20190207
  27. SMOFKABIVEN PERIPHERAL [Concomitant]
     Dosage: QUANTITY 1, DAYS 15
     Dates: start: 20190131, end: 20190214

REACTIONS (9)
  - Hypophagia [Unknown]
  - Sjogren^s syndrome [Unknown]
  - Product use in unapproved indication [Unknown]
  - Adverse event [Unknown]
  - Constipation [Unknown]
  - Rheumatoid arthritis [Unknown]
  - Tuberculosis [Unknown]
  - Osteoporosis [Unknown]
  - Ileus [Unknown]

NARRATIVE: CASE EVENT DATE: 201902
